FAERS Safety Report 21923275 (Version 4)
Quarter: 2023Q1

REPORT INFORMATION
  Report Type: Spontaneous
  Country: CA (occurrence: CA)
  Receive Date: 20230129
  Receipt Date: 20230317
  Transmission Date: 20230418
  Serious: Yes (Other)
  Sender: FDA-Public Use
  Company Number: CA-CELLTRION INC.-2021CA017363

PATIENT

DRUGS (14)
  1. INFLECTRA [Suspect]
     Active Substance: INFLIXIMAB-DYYB
     Indication: Crohn^s disease
     Dosage: 5 MG/KG 0,2,6 WEEKS THEN EVERY 8 WEEKS
     Route: 065
  2. INFLECTRA [Suspect]
     Active Substance: INFLIXIMAB-DYYB
     Dosage: 5 MG/KG 0,2,6 WEEKS THEN EVERY 8 WEEKS
     Route: 065
     Dates: start: 20211013
  3. INFLECTRA [Suspect]
     Active Substance: INFLIXIMAB-DYYB
     Dosage: 5 MG/KG 0,2,6 WEEKS THEN EVERY 8 WEEKS - NOT YET STARTED
     Route: 065
     Dates: start: 20211027
  4. INFLECTRA [Suspect]
     Active Substance: INFLIXIMAB-DYYB
     Dosage: 5 MG/KG 0,2,6 WEEKS THEN EVERY 8 WEEKS - NOT YET STARTED
     Route: 065
     Dates: start: 20220119
  5. INFLECTRA [Suspect]
     Active Substance: INFLIXIMAB-DYYB
     Dosage: 5MG/KG 0,2,6 WEEKS THEN EVERY 8 WEEKS
     Route: 065
     Dates: start: 20220318
  6. INFLECTRA [Suspect]
     Active Substance: INFLIXIMAB-DYYB
     Dosage: 5MG/KG 0,2,6 WEEKS THEN EVERY 8 WEEKS
     Route: 065
     Dates: start: 20220511
  7. INFLECTRA [Suspect]
     Active Substance: INFLIXIMAB-DYYB
     Dosage: 5MG/KG 0,2,6 WEEKS THEN EVERY 8 WEEKS
     Route: 065
     Dates: start: 20220707
  8. INFLECTRA [Suspect]
     Active Substance: INFLIXIMAB-DYYB
     Dosage: 5MG/KG 0,2,6 WEEKS THEN EVERY 8 WEEKS
     Route: 065
     Dates: start: 20220901
  9. INFLECTRA [Suspect]
     Active Substance: INFLIXIMAB-DYYB
     Dosage: 5MG/KG 0,2,6 WEEKS THEN EVERY 8 WEEKS
     Route: 042
     Dates: start: 20221222
  10. INFLECTRA [Suspect]
     Active Substance: INFLIXIMAB-DYYB
     Dosage: 250 MG (5 MG/KG) AFTER 10 WEEKS AND 5 DAYS
     Route: 042
     Dates: start: 20230307
  11. AMLODIPINE [Concomitant]
     Active Substance: AMLODIPINE BESYLATE
     Dosage: 1 DF, DOSAGE NOT AVAILABLE
     Route: 065
  12. ESTRADIOL [Concomitant]
     Active Substance: ESTRADIOL
     Dosage: 1 DF, DOSAGE NOT AVAILABLE
     Route: 065
  13. ERGOCALCIFEROL [Concomitant]
     Active Substance: ERGOCALCIFEROL
     Dosage: 1 DF ,DOSAGE NOT AVAILABLE
     Route: 065
  14. ZOLMITRIPTAN [Concomitant]
     Active Substance: ZOLMITRIPTAN
     Dosage: 1 DF ,DOSAGE NOT AVAILABLE
     Route: 065

REACTIONS (8)
  - Systemic lupus erythematosus [Not Recovered/Not Resolved]
  - Off label use [Unknown]
  - Intentional product use issue [Unknown]
  - Inappropriate schedule of product administration [Unknown]
  - Epistaxis [Recovered/Resolved with Sequelae]
  - Peripheral swelling [Not Recovered/Not Resolved]
  - Condition aggravated [Recovering/Resolving]
  - Arthralgia [Unknown]

NARRATIVE: CASE EVENT DATE: 20211201
